FAERS Safety Report 5194981-9 (Version None)
Quarter: 2006Q4

REPORT INFORMATION
  Report Type: 
  Country: None (occurrence: None)
  Receive Date: 20061227
  Receipt Date: 20061207
  Transmission Date: 20070319
  Serious: Yes (Death)
  Sender: FDA-Public Use
  Company Number: HCDA20060005

PATIENT
  Age: 12 Month
  Sex: Female

DRUGS (2)
  1. HYDROCODONE BITARTRATE + ACETAMINOPHEN [Suspect]
     Dosage: PO
     Route: 048
     Dates: start: 20050101, end: 20050101
  2. TIZANIDINE HCL [Suspect]
     Dosage: PO
     Route: 048
     Dates: start: 20050101, end: 20050101

REACTIONS (5)
  - ACCIDENTAL DRUG INTAKE BY CHILD [None]
  - APNOEA [None]
  - CARDIO-RESPIRATORY ARREST [None]
  - COMA [None]
  - CONVULSION [None]
